FAERS Safety Report 9119901 (Version 2)
Quarter: 2013Q2

REPORT INFORMATION
  Report Type: Spontaneous
  Country: MX (occurrence: MX)
  Receive Date: 20130226
  Receipt Date: 20130423
  Transmission Date: 20140414
  Serious: Yes (Other)
  Sender: FDA-Public Use
  Company Number: MX-ELI_LILLY_AND_COMPANY-MX201302006432

PATIENT
  Age: 76 Year
  Sex: Female

DRUGS (6)
  1. FORTEO [Suspect]
     Dosage: 20 UG, UNK
     Dates: start: 20130109
  2. ERYTHROPOIETIN [Concomitant]
     Dosage: UNK, UNKNOWN
     Route: 065
  3. ALLOPURINOL [Concomitant]
     Indication: RENAL FAILURE
     Dosage: UNK, UNKNOWN
     Route: 065
  4. METFORMIN [Concomitant]
     Indication: DIABETES MELLITUS
     Dosage: UNK, UNKNOWN
     Route: 065
  5. MICARDIS [Concomitant]
     Indication: HYPERTENSION
     Dosage: UNK, UNKNOWN
     Route: 065
  6. AMLODIPINE [Concomitant]
     Indication: HYPERTENSION
     Dosage: UNK, UNKNOWN
     Route: 065

REACTIONS (3)
  - Renal failure chronic [Recovered/Resolved]
  - Eye haemorrhage [Recovered/Resolved]
  - Hypertension [Recovered/Resolved]
